FAERS Safety Report 9411245 (Version 1)
Quarter: 2013Q3

REPORT INFORMATION
  Report Type: Spontaneous
  Country: US (occurrence: US)
  Receive Date: 20130722
  Receipt Date: 20130722
  Transmission Date: 20140515
  Serious: No
  Sender: FDA-Public Use
  Company Number: US-009507513-1307USA006167

PATIENT
  Age: 67 Year
  Sex: Female

DRUGS (4)
  1. DULERA [Suspect]
     Indication: CHRONIC OBSTRUCTIVE PULMONARY DISEASE
     Dosage: 200 MCG/5 MCG/ TWO INHALATIONS, TWICE DAILY
     Route: 055
     Dates: start: 20130501
  2. DULERA [Suspect]
     Indication: EMPHYSEMA
  3. DULERA [Suspect]
     Indication: ASTHMA
  4. XANAX [Concomitant]

REACTIONS (4)
  - Retinal disorder [Not Recovered/Not Resolved]
  - Cataract [Not Recovered/Not Resolved]
  - Decreased appetite [Not Recovered/Not Resolved]
  - Off label use [Unknown]
